FAERS Safety Report 7238481-0 (Version None)
Quarter: 2011Q1

REPORT INFORMATION
  Report Type: 
  Country: None (occurrence: None)
  Receive Date: 20110119
  Receipt Date: 20110119
  Transmission Date: 20110831
  Serious: Yes (Other)
  Sender: FDA-Public Use
  Company Number: None

PATIENT
  Age: 36 Year
  Sex: Female
  Weight: 83.9154 kg

DRUGS (1)
  1. SOLODYN [Suspect]
     Indication: ACNE
     Dosage: ONE TABLET ONE TIME A DAY PO
     Route: 048
     Dates: start: 20100909, end: 20100917

REACTIONS (2)
  - FUNGAL INFECTION [None]
  - COLITIS [None]
